FAERS Safety Report 6045492-X (Version None)
Quarter: 2009Q1

REPORT INFORMATION
  Report Type: 
  Country: None (occurrence: None)
  Receive Date: 20090121
  Receipt Date: 20090114
  Transmission Date: 20090719
  Serious: Yes (Congenital Anomaly)
  Sender: FDA-Public Use
  Company Number: A0743111A

PATIENT
  Sex: Female

DRUGS (6)
  1. PAXIL [Suspect]
     Indication: DEPRESSION
  2. CORTISONE ACETATE TAB [Concomitant]
  3. KLONOPIN [Concomitant]
  4. SYNTHROID [Concomitant]
  5. VITAMIN TAB [Concomitant]
  6. BENADRYL [Concomitant]

REACTIONS (24)
  - ASTHMA [None]
  - BRONCHITIS [None]
  - CEREBROSCLEROSIS [None]
  - DRUG EXPOSURE DURING PREGNANCY [None]
  - DYSPEPSIA [None]
  - EPILEPSY [None]
  - FALLOT'S TETRALOGY [None]
  - FOETAL GROWTH RETARDATION [None]
  - GASTROINTESTINAL HAEMORRHAGE [None]
  - GASTROOESOPHAGEAL REFLUX DISEASE [None]
  - HEART DISEASE CONGENITAL [None]
  - LUNG DISORDER [None]
  - MULTIPLE ALLERGIES [None]
  - MULTIPLE CONGENITAL ABNORMALITIES [None]
  - NEURAL TUBE DEFECT [None]
  - OESOPHAGEAL ATRESIA [None]
  - PECTUS EXCAVATUM [None]
  - PNEUMONIA [None]
  - PYREXIA [None]
  - RESPIRATORY SYNCYTIAL VIRUS INFECTION [None]
  - SCOLIOSIS [None]
  - SINUSITIS [None]
  - SPINE MALFORMATION [None]
  - TRACHEO-OESOPHAGEAL FISTULA [None]
